FAERS Safety Report 13668285 (Version 1)
Quarter: 2017Q2

REPORT INFORMATION
  Report Type: Spontaneous
  Country: US (occurrence: US)
  Receive Date: 20170620
  Receipt Date: 20170620
  Transmission Date: 20170830
  Serious: No
  Sender: FDA-Public Use
  Company Number: US-PFIZER INC-2017265241

PATIENT
  Age: 49 Year
  Sex: Male
  Weight: 95.25 kg

DRUGS (2)
  1. PRILOSEC [Concomitant]
     Active Substance: OMEPRAZOLE MAGNESIUM
     Indication: DYSPEPSIA
     Dosage: OTC DOSE, AS NEEDED
  2. VIAGRA [Suspect]
     Active Substance: SILDENAFIL CITRATE
     Indication: ERECTILE DYSFUNCTION
     Dosage: 50 MG, AS NEEDED
     Route: 048
     Dates: start: 201609

REACTIONS (2)
  - Drug effect incomplete [Unknown]
  - Premature ejaculation [Not Recovered/Not Resolved]

NARRATIVE: CASE EVENT DATE: 201609
